FAERS Safety Report 25068869 (Version 1)
Quarter: 2025Q1

REPORT INFORMATION
  Report Type: Spontaneous
  Country: US (occurrence: US)
  Receive Date: 20250312
  Receipt Date: 20250312
  Transmission Date: 20250408
  Serious: No
  Sender: SANOFI AVENTIS
  Company Number: US-SA-2025SA069280

PATIENT
  Age: 66 Year
  Sex: Male
  Weight: 110.45 kg

DRUGS (4)
  1. DUPIXENT [Suspect]
     Active Substance: DUPILUMAB
     Indication: Asthma
     Dosage: 300 MG, QOW
     Route: 058
     Dates: start: 202304
  2. HYDROXYZINE [Concomitant]
     Active Substance: HYDROXYZINE HYDROCHLORIDE
  3. HAEGARDA [Concomitant]
     Active Substance: HUMAN C1-ESTERASE INHIBITOR
     Dosage: UNK, QD
  4. LORATADINE [Concomitant]
     Active Substance: LORATADINE

REACTIONS (2)
  - Weight increased [Unknown]
  - Skin disorder [Recovered/Resolved]

NARRATIVE: CASE EVENT DATE: 20250301
